FAERS Safety Report 5975967-0 (Version None)
Quarter: 2008Q4

REPORT INFORMATION
  Report Type: 
  Country: None (occurrence: None)
  Receive Date: 20081124
  Receipt Date: 20080527
  Transmission Date: 20090506
  Serious: Yes (Other)
  Sender: FDA-Public Use
  Company Number: 48772

PATIENT
  Age: 69 Year
  Sex: Male

DRUGS (1)
  1. AMIODARONE HCL [Suspect]
     Indication: VASCULAR GRAFT

REACTIONS (2)
  - ILL-DEFINED DISORDER [None]
  - RESPIRATORY TRACT IRRITATION [None]
